FAERS Safety Report 19782610 (Version 1)
Quarter: 2021Q3

REPORT INFORMATION
  Report Type: Spontaneous
  Country: AM (occurrence: AM)
  Receive Date: 20210902
  Receipt Date: 20210902
  Transmission Date: 20211014
  Serious: No
  Sender: FDA-Public Use
  Company Number: AM-LUPIN PHARMACEUTICALS INC.-2021-16156

PATIENT
  Age: 37 Year
  Sex: Female

DRUGS (2)
  1. DESLORATADINE TABLETS, 5 MG [Suspect]
     Active Substance: DESLORATADINE
     Indication: RHINITIS ALLERGIC
     Dosage: 5 MILLIGRAM
     Route: 065
  2. DESLORATADINE TABLETS, 5 MG [Suspect]
     Active Substance: DESLORATADINE
     Dosage: 5 MILLIGRAM
     Route: 065

REACTIONS (2)
  - Dermatitis allergic [Unknown]
  - Allergic reaction to excipient [Unknown]
